FAERS Safety Report 9782971 (Version 3)
Quarter: 2014Q1

REPORT INFORMATION
  Report Type: Spontaneous
  Country: JP (occurrence: JP)
  Receive Date: 20131226
  Receipt Date: 20140213
  Transmission Date: 20141002
  Serious: Yes (Other)
  Sender: FDA-Public Use
  Company Number: JP-PFIZER INC-2013362931

PATIENT
  Age: 51 Year
  Sex: Male

DRUGS (2)
  1. PAXIL [Suspect]
     Indication: DEPRESSION
     Dosage: 20 MG, UNK
  2. PAXIL [Suspect]
     Dosage: 10 MG, UNK

REACTIONS (1)
  - Thrombocytopenia [Recovering/Resolving]
